FAERS Safety Report 17450559 (Version 1)
Quarter: 2020Q1

REPORT INFORMATION
  Report Type: Spontaneous
  Country: US (occurrence: US)
  Receive Date: 20200224
  Receipt Date: 20200224
  Transmission Date: 20200409
  Serious: Yes (Hospitalization, Other)
  Sender: FDA-Public Use
  Company Number: US-SCIEGEN PHARMACEUTICALS INC-2020SCILIT00052

PATIENT
  Age: 59 Year
  Sex: Female

DRUGS (1)
  1. IRBESARTAN TABLETS [Suspect]
     Active Substance: IRBESARTAN

REACTIONS (1)
  - Angioedema [Recovered/Resolved]
